FAERS Safety Report 22661484 (Version 1)
Quarter: 2023Q2

REPORT INFORMATION
  Report Type: Spontaneous
  Country: US (occurrence: US)
  Receive Date: 20230630
  Receipt Date: 20230630
  Transmission Date: 20230721
  Serious: No
  Sender: FDA-Public Use
  Company Number: US-ABBVIE-5309875

PATIENT
  Sex: Male

DRUGS (5)
  1. LEXAPRO [Suspect]
     Active Substance: ESCITALOPRAM OXALATE
     Indication: Product used for unknown indication
     Dosage: LAST ADMIN DATE: 2023
     Route: 048
     Dates: start: 202304
  2. JARDIANCE [Concomitant]
     Active Substance: EMPAGLIFLOZIN
     Indication: Product used for unknown indication
  3. LANTUS [Suspect]
     Active Substance: INSULIN GLARGINE
     Indication: Depression
     Dosage: FORM STRENGTH: 100 IU ?LANTUS SOLOSTAR
     Route: 065
     Dates: start: 202304, end: 202304
  4. LANTUS [Suspect]
     Active Substance: INSULIN GLARGINE
     Indication: Depression
     Route: 065
     Dates: start: 20230405
  5. METFORMIN HYDROCHLORIDE [Suspect]
     Active Substance: METFORMIN HYDROCHLORIDE
     Indication: Product used for unknown indication
     Route: 065

REACTIONS (16)
  - Neuropathy peripheral [Unknown]
  - Neck deformity [Unknown]
  - Musculoskeletal stiffness [Unknown]
  - Paraesthesia oral [Not Recovered/Not Resolved]
  - Tremor [Unknown]
  - Abdominal pain upper [Unknown]
  - Pollakiuria [Unknown]
  - Asthenia [Unknown]
  - Carpal tunnel syndrome [Unknown]
  - Back pain [Unknown]
  - Skin burning sensation [Unknown]
  - Product storage error [Unknown]
  - Liquid product physical issue [Unknown]
  - Burning sensation [Unknown]
  - Anxiety [Unknown]
  - Product use in unapproved indication [Unknown]

NARRATIVE: CASE EVENT DATE: 20230101
